FAERS Safety Report 8517974-X (Version None)
Quarter: 2012Q3

REPORT INFORMATION
  Report Type: 
  Country: None (occurrence: None)
  Receive Date: 20120712
  Receipt Date: 20120712
  Transmission Date: 20120928
  Serious: Yes (Other)
  Sender: FDA-Public Use
  Company Number: None

PATIENT
  Age: 29 Year
  Sex: Female
  Weight: 82.1011 kg

DRUGS (1)
  1. MONISTAT [Suspect]
     Indication: FUNGAL INFECTION
     Dosage: 1 OVULE 1 TIME VAG
     Route: 067
     Dates: start: 20120711, end: 20120711

REACTIONS (3)
  - HAEMORRHAGE [None]
  - SWELLING [None]
  - BURNING SENSATION [None]
